FAERS Safety Report 20628678 (Version 1)
Quarter: 2022Q1

REPORT INFORMATION
  Report Type: Spontaneous
  Country: US (occurrence: None)
  Receive Date: 20220323
  Receipt Date: 20220323
  Transmission Date: 20220423
  Serious: Yes (Hospitalization)
  Sender: FDA-Public Use
  Company Number: None

PATIENT
  Sex: Male

DRUGS (6)
  1. TACROLIMUS [Suspect]
     Active Substance: TACROLIMUS
     Indication: Liver transplant
     Dosage: FREQUENCY : TWICE A DAY;?
     Route: 048
     Dates: start: 20210720
  2. ALBUTEROL [Concomitant]
     Active Substance: ALBUTEROL
  3. PROAIR RESPICLICK [Concomitant]
     Active Substance: ALBUTEROL SULFATE
  4. PULMICORT SUS [Concomitant]
  5. TACROLIMUS [Concomitant]
     Active Substance: TACROLIMUS
     Route: 048
  6. TACROLIMUS A [Concomitant]

REACTIONS (1)
  - Hospitalisation [None]
